FAERS Safety Report 5763814-1 (Version None)
Quarter: 2008Q2

REPORT INFORMATION
  Report Type: 
  Country: None (occurrence: None)
  Receive Date: 20080602
  Receipt Date: 20080319
  Transmission Date: 20081010
  Serious: Yes (Hospitalization)
  Sender: FDA-Public Use
  Company Number: FACT0800063

PATIENT
  Age: 46 Year
  Sex: Female
  Weight: 67.1 kg

DRUGS (2)
  1. FACTIVE [Suspect]
     Indication: SINUSITIS
     Dosage: 320 MG, QD, ORAL
     Route: 048
     Dates: start: 20080226, end: 20080301
  2. CLARITIN [Concomitant]

REACTIONS (1)
  - CLOSTRIDIUM COLITIS [None]
